FAERS Safety Report 13005758 (Version 1)
Quarter: 2016Q4

REPORT INFORMATION
  Report Type: Spontaneous
  Country: IT (occurrence: IT)
  Receive Date: 20161207
  Receipt Date: 20161207
  Transmission Date: 20170207
  Serious: Yes (Other)
  Sender: FDA-Public Use
  Company Number: IT-TEVA-716452ACC

PATIENT
  Sex: Male
  Weight: 54 kg

DRUGS (1)
  1. CISPLATIN. [Suspect]
     Active Substance: CISPLATIN
     Indication: PHARYNGEAL NEOPLASM
     Dosage: 154 MG CYCLICAL

REACTIONS (3)
  - Presbyacusis [Unknown]
  - Apparent life threatening event [Unknown]
  - Tinnitus [Unknown]
